FAERS Safety Report 13009958 (Version 1)
Quarter: 2016Q4

REPORT INFORMATION
  Report Type: Spontaneous
  Country: GB (occurrence: GB)
  Receive Date: 20161208
  Receipt Date: 20161208
  Transmission Date: 20170207
  Serious: Yes (Other)
  Sender: FDA-Public Use
  Company Number: GB-FRESENIUS KABI-FK201609577

PATIENT
  Age: 10 Year
  Sex: Female

DRUGS (7)
  1. IRINOTECAN (MANUFACTURER UNKNOWN) [Suspect]
     Active Substance: IRINOTECAN
     Indication: GLIOMA
     Route: 065
     Dates: end: 20151211
  2. CYCLOPHOSPHAMIDE SANDOZ [Suspect]
     Active Substance: CYCLOPHOSPHAMIDE
     Indication: GLIOMA
     Dates: start: 201304
  3. VINCRISTINE [Suspect]
     Active Substance: VINCRISTINE
     Indication: GLIOMA
     Dates: start: 2007
  4. VINCRISTINE [Suspect]
     Active Substance: VINCRISTINE
     Dates: start: 201301
  5. VINCRISTINE [Suspect]
     Active Substance: VINCRISTINE
     Dates: start: 201304
  6. BEVACIZUMAB [Suspect]
     Active Substance: BEVACIZUMAB
     Indication: GLIOMA
     Dates: start: 201311, end: 20131211
  7. CISPLATIN EBEWE [Suspect]
     Active Substance: CISPLATIN
     Indication: GLIOMA
     Dates: start: 201304

REACTIONS (1)
  - Disease progression [Unknown]

NARRATIVE: CASE EVENT DATE: 201611
